FAERS Safety Report 7471142-1 (Version None)
Quarter: 2011Q2

REPORT INFORMATION
  Report Type: 
  Country: None (occurrence: None)
  Receive Date: 20110510
  Receipt Date: 20110505
  Transmission Date: 20111010
  Serious: Yes (Other)
  Sender: FDA-Public Use
  Company Number: FR-PFIZER INC-2011096810

PATIENT
  Age: 53 Year
  Sex: Female

DRUGS (9)
  1. ASPIRIN [Suspect]
  2. LYRICA [Suspect]
     Dosage: 50 MG, 1X/DAY
  3. ACETAMINOPHEN [Suspect]
  4. SPIRONOLACTONE [Concomitant]
  5. CELECTOL [Concomitant]
  6. DAFLON [Concomitant]
  7. ZANIDIP [Concomitant]
  8. ATORVASTATIN CALCIUM [Suspect]
     Dosage: 10 MG, 1X/DAY
  9. CLONAZEPAM [Suspect]

REACTIONS (1)
  - PLATELET COUNT DECREASED [None]
